FAERS Safety Report 23154701 (Version 1)
Quarter: 2023Q4

REPORT INFORMATION
  Report Type: Spontaneous
  Country: US (occurrence: US)
  Receive Date: 20231107
  Receipt Date: 20231107
  Transmission Date: 20240109
  Serious: No
  Sender: FDA-Public Use
  Company Number: US-PFIZER INC-202300349442

PATIENT
  Age: 72 Year
  Sex: Female
  Weight: 52.154 kg

DRUGS (1)
  1. PAXLOVID [Suspect]
     Active Substance: NIRMATRELVIR\RITONAVIR
     Indication: COVID-19 treatment
     Dosage: [NIRMATRELVIR 300 MG]/[RITONAVIR 100 MG]; 2X/DAY
     Dates: start: 20231025

REACTIONS (9)
  - Insomnia [Unknown]
  - Dizziness [Unknown]
  - Cough [Unknown]
  - Dysgeusia [Unknown]
  - Nausea [Unknown]
  - Condition aggravated [Unknown]
  - Weight decreased [Unknown]
  - Chills [Unknown]
  - Restlessness [Unknown]

NARRATIVE: CASE EVENT DATE: 20231025
